FAERS Safety Report 18908493 (Version 7)
Quarter: 2021Q3

REPORT INFORMATION
  Report Type: Report from Study
  Country: US (occurrence: US)
  Receive Date: 20210218
  Receipt Date: 20210706
  Transmission Date: 20211014
  Serious: Yes (Other)
  Sender: FDA-Public Use
  Company Number: NVSC2021US032157

PATIENT
  Age: 62 Year
  Sex: Male

DRUGS (4)
  1. ENTRESTO [Suspect]
     Active Substance: SACUBITRIL\VALSARTAN
     Indication: CARDIAC FAILURE
     Dosage: 1 DF (49/51 MG), UNKNOWN
     Route: 048
  2. ASPIRIN. [Suspect]
     Active Substance: ASPIRIN
     Indication: PRODUCT USED FOR UNKNOWN INDICATION
     Dosage: 81 MG, UNKNOWN
     Route: 065
  3. BABY ASPIRIN [Concomitant]
     Active Substance: ASPIRIN
     Indication: PRODUCT USED FOR UNKNOWN INDICATION
     Dosage: UNK (FOR 12 YEARS)
     Route: 065
  4. ENTRESTO [Suspect]
     Active Substance: SACUBITRIL\VALSARTAN
     Indication: MYOCARDIAL INFARCTION
     Dosage: 200 MG (97/103 MG), BID
     Route: 048
     Dates: start: 20210104

REACTIONS (13)
  - Cardiac disorder [Unknown]
  - Dyspnoea [Not Recovered/Not Resolved]
  - Productive cough [Unknown]
  - Hernia [Not Recovered/Not Resolved]
  - Cough [Unknown]
  - Pneumothorax [Unknown]
  - Weight decreased [Unknown]
  - Weight increased [Unknown]
  - Decreased activity [Unknown]
  - Respiratory tract congestion [Unknown]
  - Pulmonary oedema [Not Recovered/Not Resolved]
  - Unevaluable event [Unknown]
  - Back pain [Not Recovered/Not Resolved]

NARRATIVE: CASE EVENT DATE: 202101
